FAERS Safety Report 8583146-6 (Version None)
Quarter: 2012Q3

REPORT INFORMATION
  Report Type: 
  Country: None (occurrence: None)
  Receive Date: 20120809
  Receipt Date: 20120802
  Transmission Date: 20120928
  Serious: Yes (Hospitalization)
  Sender: FDA-Public Use
  Company Number: US-FRI-1000037001

PATIENT
  Sex: Female

DRUGS (12)
  1. VIIBRYD [Suspect]
     Dosage: 10 MG
     Dates: start: 20120618, end: 20120624
  2. ZOLOFT [Concomitant]
     Dosage: 50 MG
  3. PRINIVIL [Concomitant]
     Dosage: 40 MG
     Route: 048
  4. PERCOCET [Concomitant]
     Dosage: 5/325 MG QID
     Route: 048
  5. VIIBRYD [Suspect]
     Dosage: 40 MG
     Dates: start: 20120702, end: 20120703
  6. VITAMIN D [Concomitant]
     Dosage: 50 MG
  7. TEMAZEPAM [Concomitant]
     Dosage: 30 MG QHS
     Route: 048
  8. AMLODIPINE [Concomitant]
     Dosage: 10 MG
     Route: 048
  9. VIIBRYD [Suspect]
     Dosage: 20 MG
     Dates: start: 20120625, end: 20120701
  10. VICODIN HP [Concomitant]
     Dosage: 660 MG-1 MG TABLET TID
  11. MOBIC [Concomitant]
     Dosage: 15 MG
  12. PEPCID [Concomitant]
     Dosage: 20 MG QD

REACTIONS (1)
  - PANCREATITIS [None]
